FAERS Safety Report 6123387-0 (Version None)
Quarter: 2009Q1

REPORT INFORMATION
  Report Type: 
  Country: None (occurrence: None)
  Receive Date: 20090318
  Receipt Date: 20090311
  Transmission Date: 20090719
  Serious: Yes (Other)
  Sender: FDA-Public Use
  Company Number: DK-AMGEN-US335726

PATIENT
  Sex: Male

DRUGS (5)
  1. ENBREL [Suspect]
     Indication: ANKYLOSING SPONDYLITIS
     Route: 058
     Dates: start: 20080117
  2. FOLIC ACID [Concomitant]
     Route: 065
  3. PINEX [Concomitant]
     Dosage: P.N. NOT MORE THAN 4 G PER DAY
     Route: 065
  4. METHOTREXATE [Concomitant]
     Route: 065
  5. MANDOLGIN [Concomitant]
     Route: 065

REACTIONS (2)
  - CONVULSION [None]
  - LOSS OF CONSCIOUSNESS [None]
